FAERS Safety Report 24537987 (Version 1)
Quarter: 2024Q4

REPORT INFORMATION
  Report Type: Spontaneous
  Country: BR (occurrence: BR)
  Receive Date: 20241023
  Receipt Date: 20241023
  Transmission Date: 20250114
  Serious: Yes (Other)
  Sender: SANDOZ
  Company Number: BR-002147023-PHHY2019BR129552

PATIENT
  Sex: Female

DRUGS (1)
  1. PARLODEL [Suspect]
     Active Substance: BROMOCRIPTINE MESYLATE
     Indication: Pituitary tumour
     Dosage: UNK
     Route: 065

REACTIONS (1)
  - Drug dependence [Unknown]
